FAERS Safety Report 16798715 (Version 2)
Quarter: 2020Q4

REPORT INFORMATION
  Report Type: Spontaneous
  Country: BE (occurrence: BE)
  Receive Date: 20190912
  Receipt Date: 20201211
  Transmission Date: 20210113
  Serious: No
  Sender: FDA-Public Use
  Company Number: BE-BEH-2019106152

PATIENT
  Age: 73 Year
  Sex: Female

DRUGS (2)
  1. SANDOGLOBULINE [Suspect]
     Active Substance: HUMAN IMMUNOGLOBULIN G
     Indication: WALDENSTROM^S MACROGLOBULINAEMIA
     Route: 042
  2. PRIVIGEN [Suspect]
     Active Substance: HUMAN IMMUNOGLOBULIN G
     Indication: PRODUCT USED FOR UNKNOWN INDICATION
     Route: 065

REACTIONS (2)
  - Adverse drug reaction [Unknown]
  - Extravasation [Unknown]
